FAERS Safety Report 7952733-8 (Version None)
Quarter: 2011Q4

REPORT INFORMATION
  Report Type: 
  Country: None (occurrence: None)
  Receive Date: 20111201
  Receipt Date: 20111124
  Transmission Date: 20120403
  Serious: Yes (Hospitalization)
  Sender: FDA-Public Use
  Company Number: NL-ABBOTT-11P-114-0856220-00

PATIENT
  Sex: Male
  Weight: 76 kg

DRUGS (12)
  1. ALENDRONATE SODIUM [Concomitant]
     Indication: OSTEOPOROSIS PROPHYLAXIS
     Route: 048
     Dates: start: 20110822
  2. PREDNISOLONE [Concomitant]
  3. METHOTREXATE [Concomitant]
     Indication: RHEUMATOID ARTHRITIS
     Dosage: 10 TABLETS
     Route: 048
     Dates: start: 20110401
  4. HUMIRA [Suspect]
     Indication: RHEUMATOID ARTHRITIS
     Route: 058
     Dates: start: 20110826, end: 20110826
  5. CALCI CHEW D3 [Concomitant]
     Indication: OSTEOPOROSIS PROPHYLAXIS
     Route: 048
     Dates: start: 20110401
  6. PREDNISOLONE [Concomitant]
     Indication: RHEUMATOID ARTHRITIS
     Route: 048
     Dates: start: 20110830
  7. FOLIC ACID [Concomitant]
     Indication: VITAMIN SUPPLEMENTATION
     Dates: start: 20110401
  8. DICLOFENAC SODIUM [Concomitant]
     Indication: ARTHRALGIA
     Route: 048
     Dates: start: 20110401
  9. ESOMEPRAZOLE [Concomitant]
     Indication: GASTRIC DISORDER
  10. ESOMEPRAZOLE [Concomitant]
     Indication: PROPHYLAXIS
     Route: 048
     Dates: start: 20110401
  11. HUMIRA [Suspect]
     Dates: start: 20111006
  12. FOLIC ACID [Concomitant]
     Indication: RHEUMATOID ARTHRITIS

REACTIONS (2)
  - PYREXIA [None]
  - BODY TEMPERATURE FLUCTUATION [None]
